FAERS Safety Report 20583543 (Version 1)
Quarter: 2022Q1

REPORT INFORMATION
  Report Type: Spontaneous
  Country: GB (occurrence: GB)
  Receive Date: 20220311
  Receipt Date: 20220311
  Transmission Date: 20220423
  Serious: Yes (Disabling, Other)
  Sender: FDA-Public Use
  Company Number: GB-MHRA-MED-202203041323151230-M4KA8

PATIENT
  Age: 37 Year
  Sex: Female
  Weight: 44 kg

DRUGS (1)
  1. CITALOPRAM [Suspect]
     Active Substance: CITALOPRAM HYDROBROMIDE
     Indication: Panic attack
     Dosage: 20 MILLIGRAM, QD (ONCE DAILY)
     Dates: start: 20220224, end: 20220225

REACTIONS (3)
  - Nausea [Not Recovered/Not Resolved]
  - Bedridden [Unknown]
  - Eating disorder [Unknown]

NARRATIVE: CASE EVENT DATE: 20220225
